FAERS Safety Report 14139578 (Version 1)
Quarter: 2017Q4

REPORT INFORMATION
  Report Type: Spontaneous
  Country: CZ (occurrence: CZ)
  Receive Date: 20171029
  Receipt Date: 20171029
  Transmission Date: 20180321
  Serious: Yes (Other)
  Sender: FDA-Public Use
  Company Number: PHHY2017CZ153218

PATIENT
  Age: 75 Year
  Sex: Female

DRUGS (1)
  1. EVEROLIMUS. [Suspect]
     Active Substance: EVEROLIMUS
     Indication: PRODUCT USED FOR UNKNOWN INDICATION
     Dosage: 10 MG, QD
     Route: 048
     Dates: start: 20170529

REACTIONS (3)
  - Metastases to bone [Unknown]
  - Metastases to lung [Unknown]
  - Humerus fracture [Unknown]

NARRATIVE: CASE EVENT DATE: 20170816
